FAERS Safety Report 8007626-7 (Version None)
Quarter: 2011Q4

REPORT INFORMATION
  Report Type: 
  Country: None (occurrence: None)
  Receive Date: 20111227
  Receipt Date: 20111213
  Transmission Date: 20120403
  Serious: No
  Sender: FDA-Public Use
  Company Number: US-ENDO PHARMACEUTICALS INC.-LACT20110018

PATIENT
  Sex: Male
  Weight: 158.9 kg

DRUGS (1)
  1. LACTULOSE ORAL SOLUTION [Suspect]
     Indication: CONSTIPATION
     Route: 048

REACTIONS (2)
  - HEPATIC ENCEPHALOPATHY [None]
  - AGITATION [None]
